FAERS Safety Report 7550344-X (Version None)
Quarter: 2011Q2

REPORT INFORMATION
  Report Type: 
  Country: None (occurrence: None)
  Receive Date: 20110615
  Receipt Date: 20101111
  Transmission Date: 20111010
  Serious: No
  Sender: FDA-Public Use
  Company Number: A0892708A

PATIENT
  Sex: Female

DRUGS (2)
  1. FOODS [Suspect]
     Route: 048
  2. PARNATE [Suspect]
     Route: 065

REACTIONS (1)
  - ADVERSE DRUG REACTION [None]
